FAERS Safety Report 6873360-X (Version None)
Quarter: 2010Q3

REPORT INFORMATION
  Report Type: 
  Country: None (occurrence: None)
  Receive Date: 20100723
  Receipt Date: 20090409
  Transmission Date: 20110219
  Serious: No
  Sender: FDA-Public Use
  Company Number: US-PFIZER INC-2008160505

PATIENT
  Sex: Male
  Weight: 113.38 kg

DRUGS (2)
  1. CHANTIX [Suspect]
     Indication: SMOKING CESSATION THERAPY
     Dosage: 1 MG, 2X/DAY
     Route: 048
     Dates: start: 20081001, end: 20081220
  2. LISINOPRIL [Concomitant]
     Dosage: UNK

REACTIONS (3)
  - CHEST PAIN [None]
  - DYSPNOEA [None]
  - MEDICATION ERROR [None]
